FAERS Safety Report 9706179 (Version 1)
Quarter: 2013Q4

REPORT INFORMATION
  Report Type: Spontaneous
  Country: US (occurrence: US)
  Receive Date: 20131124
  Receipt Date: 20131124
  Transmission Date: 20140711
  Serious: No
  Sender: FDA-Public Use
  Company Number: US-009507513-1311USA006962

PATIENT
  Sex: Female

DRUGS (2)
  1. AZASITE [Suspect]
     Indication: BLEPHARITIS
     Dosage: ONE DROP TWICE DAILY IN BOTH EYES
     Route: 031
     Dates: start: 201310
  2. AZASITE [Suspect]
     Indication: CONJUNCTIVITIS BACTERIAL

REACTIONS (2)
  - Conjunctivitis bacterial [Not Recovered/Not Resolved]
  - Inappropriate schedule of drug administration [Unknown]
